FAERS Safety Report 5701007-4 (Version None)
Quarter: 2008Q2

REPORT INFORMATION
  Report Type: 
  Country: None (occurrence: None)
  Receive Date: 20080410
  Receipt Date: 20080403
  Transmission Date: 20081010
  Serious: Yes (Other)
  Sender: FDA-Public Use
  Company Number: US-ASTRAZENECA-2006UW10749

PATIENT
  Age: 48 Year
  Sex: Male
  Weight: 84.1 kg

DRUGS (3)
  1. SEROQUEL [Suspect]
     Indication: BIPOLAR DISORDER
     Route: 048
     Dates: start: 19980101
  2. SEROQUEL [Suspect]
     Indication: DEPRESSION
     Route: 048
     Dates: start: 19980101
  3. RISPERDAL [Concomitant]
     Dates: start: 19980101

REACTIONS (2)
  - DIABETES MELLITUS [None]
  - RENAL DISORDER [None]
